FAERS Safety Report 4534127-0 (Version None)
Quarter: 2004Q4

REPORT INFORMATION
  Report Type: 
  Country: None (occurrence: None)
  Receive Date: 20041214
  Receipt Date: 20040827
  Transmission Date: 20050328
  Serious: No
  Sender: FDA-Public Use
  Company Number: USA040876797

PATIENT
  Age: 56 Year
  Sex: Male

DRUGS (5)
  1. CIALIS [Suspect]
     Dates: start: 20040727
  2. HYDROCHLOROTHIAZIDE [Concomitant]
  3. LISINOPRIL [Concomitant]
  4. ATENOLOL [Concomitant]
  5. NEURONTIN [Concomitant]

REACTIONS (8)
  - BACK PAIN [None]
  - DIABETES MELLITUS [None]
  - DIABETIC NEUROPATHY [None]
  - DIZZINESS [None]
  - HYPERTENSION [None]
  - INTERVERTEBRAL DISC DEGENERATION [None]
  - MUSCLE STRAIN [None]
  - THERAPEUTIC RESPONSE DECREASED [None]
